FAERS Safety Report 5353710-6 (Version None)
Quarter: 2007Q2

REPORT INFORMATION
  Report Type: 
  Country: None (occurrence: None)
  Receive Date: 20070521
  Receipt Date: 20070130
  Transmission Date: 20071010
  Serious: No
  Sender: FDA-Public Use
  Company Number: WAES 0702USA00020

PATIENT
  Age: 65 Year
  Sex: Male

DRUGS (10)
  1. JANUVIA [Suspect]
     Indication: DIABETES MELLITUS
     Dosage: 100 MG/DAILY/PO
     Route: 048
     Dates: start: 20061201
  2. ACTOS [Concomitant]
  3. ALLEGRA [Concomitant]
  4. AMBIEN [Concomitant]
  5. CELEBREX [Concomitant]
  6. LEXAPRO [Concomitant]
  7. TOPROL-XL [Concomitant]
  8. UROXATRAL [Concomitant]
  9. VYTORIN [Concomitant]
  10. METFORMIN HCL [Concomitant]

REACTIONS (2)
  - COUGH [None]
  - SYNCOPE [None]
